FAERS Safety Report 4733598-4 (Version None)
Quarter: 2005Q3

REPORT INFORMATION
  Report Type: 
  Country: None (occurrence: None)
  Receive Date: 20050729
  Receipt Date: 20050714
  Transmission Date: 20060218
  Serious: Yes (Death)
  Sender: FDA-Public Use
  Company Number: 2005096757

PATIENT
  Age: 53 Year
  Sex: Male
  Weight: 41 kg

DRUGS (8)
  1. CAMPTOSAR [Suspect]
     Indication: RECTAL CANCER
     Dosage: 100 MG (UNKNOWN), INTRAVENOUS
     Route: 042
     Dates: start: 20050629, end: 20050629
  2. TEGAFUR/GIMERACIL/OTERACIL POTASSIUM (TEGAFUR/GIMERACIL/OTERACIL POTAS [Concomitant]
  3. SEROTONE (AZASETRON HYDROCHLORIDE) [Concomitant]
  4. DECADRON [Concomitant]
  5. AMINOLEBAN (AMINO ACIDS NOS) [Concomitant]
  6. DOPAMINE HCL [Concomitant]
  7. KAYEXALATE SODIUM (SODIUM POLYSTYRENE SULFONATE) [Concomitant]
  8. HUMULIN R [Concomitant]

REACTIONS (6)
  - BLOOD PRESSURE DECREASED [None]
  - DEPRESSED LEVEL OF CONSCIOUSNESS [None]
  - HEPATIC FAILURE [None]
  - METABOLIC ACIDOSIS [None]
  - RENAL FAILURE [None]
  - THROMBOCYTOPENIA [None]
